FAERS Safety Report 18253420 (Version 3)
Quarter: 2023Q2

REPORT INFORMATION
  Report Type: Spontaneous
  Country: JP (occurrence: JP)
  Receive Date: 20200910
  Receipt Date: 20230502
  Transmission Date: 20230722
  Serious: Yes (Other)
  Sender: FDA-Public Use
  Company Number: JP-DSJP-DSJ-2020-125867

PATIENT
  Age: 48 Year
  Sex: Female
  Weight: 34 kg

DRUGS (8)
  1. ENHERTU [Suspect]
     Active Substance: FAM-TRASTUZUMAB DERUXTECAN-NXKI
     Indication: HER2 positive breast cancer
     Dosage: 5.4 MG, ONCE EVERY 3 WK
     Route: 041
     Dates: start: 20200626, end: 20200626
  2. ENHERTU [Suspect]
     Active Substance: FAM-TRASTUZUMAB DERUXTECAN-NXKI
     Dosage: 5.4 MG, ONCE EVERY 3 WK
     Route: 041
     Dates: start: 20200717, end: 20200717
  3. ENHERTU [Suspect]
     Active Substance: FAM-TRASTUZUMAB DERUXTECAN-NXKI
     Dosage: 5.4 MG, ONCE EVERY 3 WK
     Route: 041
     Dates: start: 20200807, end: 20200807
  4. TAMOXIFEN                          /00388702/ [Concomitant]
     Dosage: UNK
     Route: 065
     Dates: start: 20100415, end: 20120413
  5. ZOLADEX                            /00732102/ [Concomitant]
     Dosage: UNK
     Route: 065
     Dates: start: 20100415, end: 20130527
  6. FEMARA [Concomitant]
     Active Substance: LETROZOLE
     Dosage: UNK
     Route: 065
     Dates: start: 20120514, end: 20140731
  7. FASLODEX [Concomitant]
     Active Substance: FULVESTRANT
     Dosage: UNK
     Route: 065
     Dates: start: 20140731, end: 20170727
  8. DENOSUMAB [Concomitant]
     Active Substance: DENOSUMAB
     Dosage: UNK
     Route: 065
     Dates: start: 20190405

REACTIONS (2)
  - Hepatic function abnormal [Not Recovered/Not Resolved]
  - Metastases to liver [Unknown]

NARRATIVE: CASE EVENT DATE: 20200828
